FAERS Safety Report 7640636-8 (Version None)
Quarter: 2011Q3

REPORT INFORMATION
  Report Type: 
  Country: None (occurrence: None)
  Receive Date: 20110721
  Receipt Date: 20110707
  Transmission Date: 20111222
  Serious: Yes (Hospitalization, Other)
  Sender: FDA-Public Use
  Company Number: US-1185687

PATIENT
  Sex: Male

DRUGS (1)
  1. TOBRADEX ST [Suspect]
     Indication: PROPHYLAXIS
     Dosage: 1 GTT QID OPHTHALMIC
     Route: 047

REACTIONS (13)
  - EOSINOPHILIA [None]
  - HEADACHE [None]
  - EYE IRRITATION [None]
  - VOMITING [None]
  - SKIN IRRITATION [None]
  - DEPRESSION [None]
  - DIZZINESS [None]
  - EYE PAIN [None]
  - AGITATION [None]
  - NAUSEA [None]
  - OTOTOXICITY [None]
  - ANXIETY [None]
  - VERTIGO [None]
